FAERS Safety Report 24404401 (Version 1)
Quarter: 2024Q4

REPORT INFORMATION
  Report Type: Spontaneous
  Country: US (occurrence: None)
  Receive Date: 20241004
  Receipt Date: 20241004
  Transmission Date: 20250115
  Serious: Yes (Disabling)
  Sender: Public
  Company Number: None

PATIENT
  Age: 73 Year
  Sex: Female
  Weight: 62.14 kg

DRUGS (9)
  1. RECLAST [Suspect]
     Active Substance: ZOLEDRONIC ACID
     Indication: Osteoporosis
     Dates: start: 20240801, end: 20240801
  2. VITAMIN D3 [Concomitant]
     Active Substance: CHOLECALCIFEROL
  3. Rosovastatin Calcium [Concomitant]
  4. LEVOTHYROXINE [Concomitant]
     Active Substance: LEVOTHYROXINE
  5. BUDESONIDE [Concomitant]
     Active Substance: BUDESONIDE
  6. HYOSCYAMINE [Concomitant]
     Active Substance: HYOSCYAMINE
  7. Clobetusol Propionate [Concomitant]
  8. MELATONIN [Concomitant]
     Active Substance: MELATONIN
  9. chamomile [Concomitant]

REACTIONS (7)
  - Musculoskeletal chest pain [None]
  - Back pain [None]
  - Arthralgia [None]
  - Chest pain [None]
  - Crying [None]
  - Middle insomnia [None]
  - Fatigue [None]
